FAERS Safety Report 8334119-X (Version None)
Quarter: 2012Q2

REPORT INFORMATION
  Report Type: 
  Country: None (occurrence: None)
  Receive Date: 20120503
  Receipt Date: 20120427
  Transmission Date: 20120825
  Serious: Yes (Other)
  Sender: FDA-Public Use
  Company Number: SE-PFIZER INC-2012105557

PATIENT
  Age: 85 Year
  Sex: Male

DRUGS (1)
  1. XALATAN [Suspect]
     Dosage: UNK
     Dates: start: 20070101

REACTIONS (6)
  - MENTAL DISORDER [None]
  - VISION BLURRED [None]
  - ASTHMA [None]
  - MALAISE [None]
  - ABDOMINAL DISCOMFORT [None]
  - FATIGUE [None]
